FAERS Safety Report 5027889-X (Version None)
Quarter: 2006Q2

REPORT INFORMATION
  Report Type: 
  Country: None (occurrence: None)
  Receive Date: 20060616
  Receipt Date: 20060607
  Transmission Date: 20061013
  Serious: Yes (Hospitalization)
  Sender: FDA-Public Use
  Company Number: AU-ROCHE-450904

PATIENT
  Age: 72 Year
  Sex: Female
  Weight: 92 kg

DRUGS (9)
  1. CAPECITABINE [Suspect]
     Dosage: ON DAYS ONE TO FOURTEEN EVERY THREE WEEKS
     Route: 048
     Dates: start: 20060206
  2. AVASTIN [Suspect]
     Route: 042
     Dates: start: 20060206
  3. AVASTIN [Suspect]
     Route: 042
  4. PERINDOPRIL ERUMINE [Concomitant]
     Route: 048
     Dates: start: 20060222, end: 20060421
  5. INDAPAMIDE [Concomitant]
     Route: 048
     Dates: start: 20060222, end: 20060421
  6. SPIRONOLACTONE [Concomitant]
     Route: 048
     Dates: start: 20060226, end: 20060322
  7. PAROXETINE HCL [Concomitant]
     Route: 048
     Dates: start: 20060228
  8. CLARAMAX [Concomitant]
     Route: 048
     Dates: start: 20060605
  9. PYROXIN [Concomitant]
     Indication: PROPHYLAXIS
     Route: 048
     Dates: start: 20060605

REACTIONS (1)
  - SCLERODERMA [None]
